FAERS Safety Report 8079940-0 (Version None)
Quarter: 2012Q1

REPORT INFORMATION
  Report Type: 
  Country: None (occurrence: None)
  Receive Date: 20120128
  Receipt Date: 20110724
  Transmission Date: 20120608
  Serious: No
  Sender: FDA-Public Use
  Company Number: US-ABBOTT-11P-163-0841322-00

PATIENT
  Age: 74 Year
  Sex: Male

DRUGS (2)
  1. LOVASTATIN [Concomitant]
     Indication: BLOOD CHOLESTEROL INCREASED
  2. HUMIRA [Suspect]
     Indication: PSORIASIS
     Dates: start: 20110101

REACTIONS (2)
  - PRURITUS [None]
  - PSORIASIS [None]
